FAERS Safety Report 8399278 (Version 5)
Quarter: 2013Q1

REPORT INFORMATION
  Report Type: Spontaneous
  Country: US (occurrence: US)
  Receive Date: 20120210
  Receipt Date: 20130131
  Transmission Date: 20140127
  Serious: Yes (Hospitalization, Other)
  Sender: FDA-Public Use
  Company Number: US-PFIZER INC-2012033361

PATIENT
  Age: 50 Year
  Sex: Male

DRUGS (7)
  1. LYRICA [Suspect]
     Indication: NEUROPATHY PERIPHERAL
     Dosage: 100 MG, 3X/DAY
     Route: 048
     Dates: start: 201104
  2. PRISTIQ [Suspect]
     Indication: DEPRESSION
     Dosage: 50 MG, 1X/DAY
     Route: 048
     Dates: start: 201002
  3. LISINOPRIL [Concomitant]
     Indication: HYPERTENSION
     Dosage: 40 MG, 1X/DAY
     Dates: start: 2009
  4. LORATADINE [Concomitant]
     Indication: RHINITIS ALLERGIC
     Dosage: 10 MG, 1X/DAY
     Dates: start: 201004
  5. BUPROPION [Concomitant]
     Indication: DEPRESSION
     Dosage: 100 MG, 2X/DAY
     Dates: start: 201002
  6. AXID [Concomitant]
     Dosage: 150 MG, 1X/DAY
  7. FOLIC ACID [Concomitant]
     Dosage: 1 MG, 1X/DAY

REACTIONS (6)
  - Staphylococcal infection [Recovered/Resolved]
  - Osteomyelitis bacterial [Recovered/Resolved]
  - Fall [Recovered/Resolved with Sequelae]
  - Clavicle fracture [Recovered/Resolved with Sequelae]
  - Pain [Unknown]
  - Swelling [Unknown]
